FAERS Safety Report 7215930-5 (Version None)
Quarter: 2011Q1

REPORT INFORMATION
  Report Type: 
  Country: None (occurrence: None)
  Receive Date: 20110104
  Receipt Date: 20110104
  Transmission Date: 20110831
  Serious: Yes (Other)
  Sender: FDA-Public Use
  Company Number: None

PATIENT
  Sex: Male
  Weight: 72.5755 kg

DRUGS (2)
  1. AMOXICILLIN [Suspect]
     Indication: SINUSITIS
     Dosage: 1 TABLET EVERY 12 HOURS PO
     Route: 048
     Dates: start: 20101228, end: 20101229
  2. AMOXICILLIN [Suspect]
     Indication: CONJUNCTIVITIS
     Dosage: 1 TABLET EVERY 12 HOURS PO
     Route: 048
     Dates: start: 20101228, end: 20101229

REACTIONS (3)
  - MIDDLE INSOMNIA [None]
  - VOMITING [None]
  - ABDOMINAL PAIN UPPER [None]
